FAERS Safety Report 23218960 (Version 1)
Quarter: 2023Q4

REPORT INFORMATION
  Report Type: Spontaneous
  Country: CN (occurrence: CN)
  Receive Date: 20231122
  Receipt Date: 20231122
  Transmission Date: 20240109
  Serious: Yes (Other)
  Sender: FDA-Public Use
  Company Number: CN-SUN PHARMACEUTICAL INDUSTRIES LTD-2023R1-419077

PATIENT
  Age: 34 Year
  Sex: Male

DRUGS (7)
  1. DECITABINE [Suspect]
     Active Substance: DECITABINE
     Indication: Chronic myeloid leukaemia
     Dosage: UNK (20 MG/M2/DAY, DAYS 1-5)
     Route: 065
  2. GRANULOCYTE COLONY-STIMULATING FACTOR NOS [Suspect]
     Active Substance: GRANULOCYTE COLONY-STIMULATING FACTOR NOS
     Indication: Chronic myeloid leukaemia
     Dosage: UNK (50-600 MG/DAY, DAYS 2-9)
     Route: 065
  3. ACLARUBICIN [Suspect]
     Active Substance: ACLARUBICIN
     Indication: Chronic myeloid leukaemia
     Dosage: 10 MILLIGRAM, DAILY (DAYS 3-6)
     Route: 065
  4. CYCLOPHOSPHAMIDE [Suspect]
     Active Substance: CYCLOPHOSPHAMIDE
     Indication: Chronic myeloid leukaemia
     Dosage: UNK
     Route: 065
  5. CYTARABINE [Suspect]
     Active Substance: CYTARABINE
     Indication: Chronic myeloid leukaemia
     Dosage: 10 MILLIGRAM/SQ. METER, BID (DAYS 3-9)
     Route: 058
  6. FLUDARABINE [Suspect]
     Active Substance: FLUDARABINE PHOSPHATE
     Indication: Chronic myeloid leukaemia
     Dosage: UNK
     Route: 065
  7. OMACETAXINE MEPESUCCINATE [Suspect]
     Active Substance: OMACETAXINE MEPESUCCINATE
     Indication: Chronic myeloid leukaemia
     Dosage: 1 MILLIGRAM, DAILY (DAYS 3-9)
     Route: 065

REACTIONS (1)
  - Therapy non-responder [Unknown]
